FAERS Safety Report 4918980-4 (Version None)
Quarter: 2006Q1

REPORT INFORMATION
  Report Type: 
  Country: None (occurrence: None)
  Receive Date: 20060222
  Receipt Date: 20050920
  Transmission Date: 20060701
  Serious: Yes (Hospitalization, Disabling)
  Sender: FDA-Public Use
  Company Number: US-MERCK-0509USA02975

PATIENT
  Age: 65 Year
  Sex: Male
  Weight: 107 kg

DRUGS (9)
  1. VIOXX [Suspect]
     Indication: BACK PAIN
     Route: 048
     Dates: start: 20000101, end: 20040920
  2. VIOXX [Suspect]
     Route: 048
  3. VIOXX [Suspect]
     Indication: ARTHRITIS
     Route: 048
     Dates: start: 20000101, end: 20040920
  4. VIOXX [Suspect]
     Route: 048
  5. TOPROL-XL [Concomitant]
     Indication: CARDIAC DISORDER
     Route: 065
  6. ALTACE [Concomitant]
     Indication: CARDIAC DISORDER
     Route: 065
  7. CELEBREX [Concomitant]
     Indication: ARTHRITIS
     Route: 065
  8. ASPIRIN [Concomitant]
     Route: 065
  9. BEXTRA [Concomitant]
     Route: 065

REACTIONS (14)
  - ANGINA UNSTABLE [None]
  - CORONARY ARTERY DISEASE [None]
  - CORONARY ARTERY STENOSIS [None]
  - DUODENAL PERFORATION [None]
  - FEAR [None]
  - GASTRITIS [None]
  - LUNG DISORDER [None]
  - MYOCARDIAL INFARCTION [None]
  - MYOCARDIAL ISCHAEMIA [None]
  - RENAL CELL CARCINOMA STAGE UNSPECIFIED [None]
  - SLEEP APNOEA SYNDROME [None]
  - SLEEP DISORDER [None]
  - SUPRAVENTRICULAR TACHYCARDIA [None]
  - VENTRICULAR HYPERTROPHY [None]
